FAERS Safety Report 12527297 (Version 2)
Quarter: 2016Q4

REPORT INFORMATION
  Report Type: Spontaneous
  Country: JP (occurrence: JP)
  Receive Date: 20160705
  Receipt Date: 20161017
  Transmission Date: 20170207
  Serious: Yes (Hospitalization)
  Sender: FDA-Public Use
  Company Number: JP-BAYER-2016-124303

PATIENT
  Sex: Female

DRUGS (3)
  1. MICONAZOLE NITRATE. [Interacting]
     Active Substance: MICONAZOLE NITRATE
     Indication: ORAL CANDIDIASIS
     Dosage: UNK
     Route: 049
  2. WARFARIN POTASSIUM [Interacting]
     Active Substance: WARFARIN POTASSIUM
     Indication: ATRIAL FIBRILLATION
     Dosage: DAILY DOSE 2 MG
     Route: 048
  3. BAYASPIRIN [Suspect]
     Active Substance: ASPIRIN
     Indication: ATRIAL FIBRILLATION
     Route: 048

REACTIONS (7)
  - Pharyngeal haematoma [Recovered/Resolved]
  - Portal venous gas [Recovered/Resolved]
  - Gastrointestinal haemorrhage [Recovered/Resolved]
  - Oral mucosa haematoma [Recovered/Resolved]
  - Thyroid haemorrhage [Recovered/Resolved]
  - Drug administration error [Recovering/Resolving]
  - Labelled drug-drug interaction medication error [Recovering/Resolving]
